FAERS Safety Report 6155661-6 (Version None)
Quarter: 2009Q2

REPORT INFORMATION
  Report Type: 
  Country: None (occurrence: None)
  Receive Date: 20090415
  Receipt Date: 20090403
  Transmission Date: 20091009
  Serious: Yes (Hospitalization)
  Sender: FDA-Public Use
  Company Number: US-ELI_LILLY_AND_COMPANY-US200904001183

PATIENT
  Age: 27 Year
  Sex: Female

DRUGS (4)
  1. SYMBYAX [Suspect]
     Indication: ANXIETY
     Dosage: 1 D/F, DAILY (1/D)
     Dates: start: 20080901
  2. SYMBYAX [Suspect]
     Dosage: 2 D/F, DAILY (1/D)
  3. XANAX [Concomitant]
  4. AMITRIPTLINE HYDROCHLORIDE TAB [Concomitant]
     Dosage: 50 MG, EACH EVENING

REACTIONS (1)
  - PSYCHOTIC DISORDER [None]
